FAERS Safety Report 9390404 (Version 2)
Quarter: 2013Q3

REPORT INFORMATION
  Report Type: Spontaneous
  Country: US (occurrence: None)
  Receive Date: 20130701
  Receipt Date: 20130723
  Transmission Date: 20140515
  Serious: Yes (Hospitalization, Other)
  Sender: FDA-Public Use
  Company Number: 2013US001818

PATIENT
  Age: 72 Year
  Sex: Female
  Weight: 57 kg

DRUGS (5)
  1. ICLUSIG [Suspect]
     Indication: CHRONIC MYELOID LEUKAEMIA
     Route: 048
     Dates: start: 20130308, end: 2013
  2. FENTANYL (FENTANYL) [Concomitant]
  3. CLONIDINE (CLONIDINE) [Concomitant]
  4. NORCO (HYDROCODONE BITARTRATE, PARACETAMOL) [Concomitant]
  5. LABETALOL (LABETALOL) [Concomitant]

REACTIONS (12)
  - Stress cardiomyopathy [None]
  - Cardiac failure congestive [None]
  - Condition aggravated [None]
  - Acute myocardial infarction [None]
  - Atrial fibrillation [None]
  - Hyperkalaemia [None]
  - Rash maculo-papular [None]
  - Fatigue [None]
  - Bundle branch block right [None]
  - Platelet count decreased [None]
  - Hypotension [None]
  - Petechiae [None]
